FAERS Safety Report 10471670 (Version 1)
Quarter: 2014Q3

REPORT INFORMATION
  Report Type: Report from Study
  Country: US (occurrence: US)
  Receive Date: 20140923
  Receipt Date: 20140923
  Transmission Date: 20150326
  Serious: Yes (Other)
  Sender: FDA-Public Use
  Company Number: US-ALEXION PHARMACEUTICALS INC.-A200901515

PATIENT
  Sex: Female

DRUGS (1)
  1. SOLIRIS [Suspect]
     Active Substance: ECULIZUMAB
     Indication: PAROXYSMAL NOCTURNAL HAEMOGLOBINURIA
     Dosage: UNK
     Route: 042

REACTIONS (18)
  - Breast mass [Unknown]
  - Fatigue [Unknown]
  - Tinnitus [Unknown]
  - Hypoaesthesia [Unknown]
  - Dyspnoea [Unknown]
  - Quality of life decreased [Unknown]
  - Headache [Recovering/Resolving]
  - Haemoglobinuria [Unknown]
  - Arthropathy [Recovering/Resolving]
  - Dysphagia [Unknown]
  - Pain in extremity [Unknown]
  - Abdominal pain [Unknown]
  - Arthralgia [Recovering/Resolving]
  - Back pain [Unknown]
  - Liver disorder [Unknown]
  - Paraesthesia [Unknown]
  - Haemolysis [Unknown]
  - Nausea [Unknown]
